FAERS Safety Report 23038020 (Version 1)
Quarter: 2023Q4

REPORT INFORMATION
  Report Type: Spontaneous
  Country: JP (occurrence: JP)
  Receive Date: 20231006
  Receipt Date: 20231006
  Transmission Date: 20240109
  Serious: Yes (Other)
  Sender: FDA-Public Use
  Company Number: JP-PFIZER INC-PV202300164455

PATIENT
  Age: 79 Year
  Sex: Male

DRUGS (4)
  1. AXITINIB [Suspect]
     Active Substance: AXITINIB
     Indication: Metastases to lung
     Dosage: UNK
  2. AXITINIB [Suspect]
     Active Substance: AXITINIB
     Indication: Metastases to adrenals
  3. AXITINIB [Suspect]
     Active Substance: AXITINIB
     Indication: Metastases to liver
  4. NIVOLUMAB [Suspect]
     Active Substance: NIVOLUMAB
     Indication: Metastases to lung
     Dosage: UNK

REACTIONS (2)
  - Nephrotic syndrome [Unknown]
  - Nephropathy toxic [Unknown]
